FAERS Safety Report 9491547 (Version 2)
Quarter: 2013Q1

REPORT INFORMATION
  Report Type: Not Available
  Country: US (occurrence: US)
  Receive Date: 20121219
  Receipt Date: 20121219
  Transmission Date: 20140127
  Serious: Yes (Other)
  Sender: FDA-Public Use
  Company Number: US-LUNDBECK-DKLU1081397

PATIENT
  Sex: Female

DRUGS (9)
  1. ONFI [Suspect]
     Indication: EPILEPSY
     Route: 048
     Dates: start: 20120411
  2. ONFI [Suspect]
     Route: 048
     Dates: start: 20120425
  3. ONFI [Suspect]
     Route: 048
     Dates: start: 20120509
  4. ONFI [Suspect]
     Route: 048
     Dates: start: 20120509
  5. ONFI [Suspect]
     Route: 048
     Dates: start: 20120523
  6. VIMPAT [Concomitant]
     Indication: PRODUCT USED FOR UNKNOWN INDICATION
  7. LYRICA [Concomitant]
     Indication: PRODUCT USED FOR UNKNOWN INDICATION
  8. TRILEPTAL [Concomitant]
     Indication: PRODUCT USED FOR UNKNOWN INDICATION
  9. KEPPRA [Concomitant]
     Indication: PRODUCT USED FOR UNKNOWN INDICATION

REACTIONS (4)
  - Convulsion [Unknown]
  - Abnormal dreams [Unknown]
  - Sleep disorder [Unknown]
  - Irritability [Unknown]
